FAERS Safety Report 5493412-9 (Version None)
Quarter: 2007Q4

REPORT INFORMATION
  Report Type: 
  Country: None (occurrence: None)
  Receive Date: 20071023
  Receipt Date: 20071010
  Transmission Date: 20080405
  Serious: Yes (Hospitalization)
  Sender: FDA-Public Use
  Company Number: FR-ELI_LILLY_AND_COMPANY-FR200710002506

PATIENT
  Sex: Male

DRUGS (2)
  1. PROZAC [Suspect]
     Indication: DEPRESSION
     Dosage: 20 MG, DAILY (1/D)
     Route: 048
     Dates: end: 20070731
  2. EFFEXOR [Interacting]
     Indication: DEPRESSION
     Dosage: 37.5 MG, 2/D
     Route: 048
     Dates: start: 20070802, end: 20070803

REACTIONS (7)
  - ANTEROGRADE AMNESIA [None]
  - CONFUSIONAL STATE [None]
  - DRUG INTERACTION [None]
  - GRAND MAL CONVULSION [None]
  - HALLUCINATION [None]
  - HEADACHE [None]
  - TREMOR [None]
